FAERS Safety Report 15298534 (Version 1)
Quarter: 2018Q3

REPORT INFORMATION
  Report Type: Spontaneous
  Country: FR (occurrence: FR)
  Receive Date: 20180820
  Receipt Date: 20180820
  Transmission Date: 20181010
  Serious: Yes (Death)
  Sender: FDA-Public Use
  Company Number: FR-NAPPMUNDI-GBR-2013-0013057

PATIENT
  Age: 76 Year
  Sex: Female
  Weight: 34 kg

DRUGS (2)
  1. ANALGESICS [Concomitant]
     Active Substance: UNSPECIFIED INGREDIENT
     Indication: PAIN
  2. OXYNORM 50MG/ML SOLUTION INJECTABLE [Suspect]
     Active Substance: OXYCODONE HYDROCHLORIDE
     Indication: CANCER PAIN
     Dosage: 50 MG/ML, UNK
     Route: 051

REACTIONS (4)
  - Malignant neoplasm progression [Fatal]
  - Respiratory failure [Fatal]
  - General physical health deterioration [Fatal]
  - Pain [Fatal]

NARRATIVE: CASE EVENT DATE: 20130114
